FAERS Safety Report 8529634 (Version 3)
Quarter: 2012Q4

REPORT INFORMATION
  Report Type: Report from Study
  Country: US (occurrence: US)
  Receive Date: 20120425
  Receipt Date: 20121231
  Transmission Date: 20130627
  Serious: Yes (Death, Hospitalization)
  Sender: FDA-Public Use
  Company Number: US-CELGENEUS-163-21880-12042325

PATIENT
  Age: 65 Year
  Sex: Male
  Weight: 86.4 kg

DRUGS (41)
  1. REVLIMID [Suspect]
     Indication: MERKEL CELL CARCINOMA
     Dosage: 20 Milligram
     Route: 048
     Dates: start: 20120312, end: 20120328
  2. TEMSIROLIMUS [Suspect]
     Indication: MERKEL CELL CARCINOMA
     Dosage: 25 Milligram
     Route: 041
     Dates: start: 20120312, end: 20120409
  3. ASPIRIN [Concomitant]
     Indication: DRUG USE FOR UNKNOWN INDICATION
     Dosage: 81 Milligram
     Route: 065
  4. ZIAC [Concomitant]
     Indication: DRUG USE FOR UNKNOWN INDICATION
     Dosage: 10/6.25mg
     Route: 065
  5. ZYRTEC [Concomitant]
     Indication: DRUG USE FOR UNKNOWN INDICATION
     Dosage: 10 Milligram
     Route: 065
  6. NEXIUM [Concomitant]
     Indication: DRUG USE FOR UNKNOWN INDICATION
     Dosage: 40 Milligram
     Route: 065
  7. PROSCAR [Concomitant]
     Indication: DRUG USE FOR UNKNOWN INDICATION
     Dosage: 5 Milligram
     Route: 065
  8. LEVAQUIN [Concomitant]
     Indication: URINARY TRACT INFECTION
     Dosage: 750 Milligram
     Route: 065
  9. ATIVAN [Concomitant]
     Indication: ANXIETY
     Dosage: .25 Milligram
     Route: 065
  10. MAGNESIUM OXIDE [Concomitant]
     Indication: DRUG USE FOR UNKNOWN INDICATION
     Dosage: 1000 Milligram
     Route: 065
  11. REGLAN [Concomitant]
     Indication: NAUSEA
     Dosage: 10 Milligram
     Route: 065
  12. REGLAN [Concomitant]
     Indication: VOMITING
  13. MIRALAX [Concomitant]
     Indication: CONSTIPATION
     Dosage: 1 scoop
     Route: 065
  14. SINGULAIR [Concomitant]
     Indication: ALLERGY
     Dosage: 10 Milligram
     Route: 065
  15. MS CONTIN [Concomitant]
     Indication: PAIN
     Dosage: 30 Milligram
     Route: 065
  16. MS CONTIN [Concomitant]
     Dosage: 15 Milligram
     Route: 065
  17. MSIR [Concomitant]
     Indication: PAIN
     Dosage: 7.5-15mg
     Route: 065
  18. ZYPREXA [Concomitant]
     Indication: DRUG USE FOR UNKNOWN INDICATION
     Dosage: 5 Milligram
     Route: 065
  19. ZOFRAN [Concomitant]
     Indication: NAUSEA
     Dosage: 8 Milligram
     Route: 065
  20. ZOFRAN [Concomitant]
     Indication: VOMITING
  21. SENNA [Concomitant]
     Indication: CONSTIPATION
     Dosage: 2 Tablet
     Route: 048
  22. FLOMAX [Concomitant]
     Indication: PROSTATIC DISORDER
     Dosage: .4 Milligram
     Route: 065
  23. ALBUTEROL [Concomitant]
     Indication: SHORTNESS OF BREATH
     Dosage: 2.5mg/3mL
     Route: 055
  24. CIPROFLOXACIN [Concomitant]
     Indication: ANTI-INFECTIVE THERAPY
     Dosage: 500 Milligram
     Route: 048
  25. HALOPERIDOL [Concomitant]
     Indication: ANXIETY
     Dosage: 2 Milligram
     Route: 041
  26. HALOPERIDOL [Concomitant]
     Indication: AGITATION
     Dosage: 2 Milligram
     Route: 041
  27. HALOPERIDOL [Concomitant]
     Indication: RESTLESSNESS
  28. HALOPERIDOL [Concomitant]
     Indication: NAUSEA
  29. HALOPERIDOL [Concomitant]
     Indication: VOMITING
  30. LACTULOSE [Concomitant]
     Indication: CONSTIPATION
     Dosage: 30 milliliter
     Route: 048
  31. OMEPRAZOLE [Concomitant]
     Indication: ACID REFLUX (OESOPHAGEAL)
     Dosage: 20 Milligram
     Route: 048
  32. VALACYCLOVIR [Concomitant]
     Indication: ANTI-INFECTIVE THERAPY
     Dosage: 1 Gram
     Route: 048
  33. VANCOMYCIN [Concomitant]
     Indication: DRUG USE FOR UNKNOWN INDICATION
     Route: 065
  34. METRONIDAZOLE [Concomitant]
     Indication: DRUG USE FOR UNKNOWN INDICATION
     Route: 065
  35. CEFEPIME [Concomitant]
     Indication: DRUG USE FOR UNKNOWN INDICATION
     Route: 065
  36. HYDROMORPHONE PCA [Concomitant]
     Indication: DRUG USE FOR UNKNOWN INDICATION
     Route: 065
  37. TAMIFLU [Concomitant]
     Indication: DRUG USE FOR UNKNOWN INDICATION
     Route: 065
  38. THORAZINE [Concomitant]
     Indication: AGITATION
     Dosage: 25 Milligram
     Route: 065
  39. THORAZINE [Concomitant]
     Indication: RESTLESSNESS
     Dosage: 50 Milligram
     Route: 065
  40. HYDRALAZINE [Concomitant]
     Indication: HYPERTENSION
     Route: 065
  41. O2 [Concomitant]
     Indication: SHORTNESS OF BREATH
     Route: 065

REACTIONS (7)
  - Neuroendocrine carcinoma of the skin [Fatal]
  - Chest pain [Not Recovered/Not Resolved]
  - Dyspnoea [Not Recovered/Not Resolved]
  - Abdominal pain [Not Recovered/Not Resolved]
  - Pyrexia [Not Recovered/Not Resolved]
  - Thrombocytopenia [Not Recovered/Not Resolved]
  - Neutropenia [Not Recovered/Not Resolved]
